FAERS Safety Report 8813757 (Version 2)
Quarter: 2012Q4

REPORT INFORMATION
  Report Type: 
  Country: US (occurrence: US)
  Receive Date: 20120928
  Receipt Date: 20121017
  Transmission Date: 20130627
  Serious: Yes (Other)
  Sender: FDA-Public Use
  Company Number: US-AMGEN-USASP2012060982

PATIENT
  Age: 64 Year
  Sex: Female

DRUGS (2)
  1. PROLIA [Suspect]
     Indication: OSTEOPOROSIS POSTMENOPAUSAL
  2. PLAQUENIL                          /00072602/ [Suspect]
     Indication: INFLAMMATION
     Dosage: UNK
     Dates: start: 2012, end: 2012

REACTIONS (5)
  - Apparent death [Unknown]
  - Anaphylactic reaction [Recovering/Resolving]
  - Skin sensitisation [Unknown]
  - Skin exfoliation [Unknown]
  - Inflammation [Unknown]
